FAERS Safety Report 7190862-X (Version None)
Quarter: 2010Q4

REPORT INFORMATION
  Report Type: 
  Country: None (occurrence: None)
  Receive Date: 20101207
  Receipt Date: 20101130
  Transmission Date: 20110411
  Serious: Yes (Other)
  Sender: FDA-Public Use
  Company Number: 2010SP062520

PATIENT
  Sex: Female

DRUGS (1)
  1. DEXACORTAL (DEXAMETHASONE / 00016001/) [Suspect]
     Indication: MALIGNANT LYMPHOID NEOPLASM
     Dosage: 1.5 MG;

REACTIONS (2)
  - ANXIETY [None]
  - HALLUCINATION [None]
